FAERS Safety Report 8880927 (Version 1)
Quarter: 2012Q4

REPORT INFORMATION
  Report Type: 
  Country: US (occurrence: US)
  Receive Date: 20121101
  Receipt Date: 20121101
  Transmission Date: 20130627
  Serious: Yes (Other)
  Sender: FDA-Public Use
  Company Number: US-BRISTOL-MYERS SQUIBB COMPANY-17059734

PATIENT
  Age: 43 Year
  Sex: Female
  Weight: 57 kg

DRUGS (3)
  1. ABATACEPT SUBQ INJECTION 125MG/ML [Suspect]
     Indication: RHEUMATOID ARTHRITIS
     Dosage: Date of Last Injection:16OCT2012
Prescription #:825197
     Route: 058
  2. TYLENOL PM [Concomitant]
  3. VALIUM [Concomitant]

REACTIONS (4)
  - Arthropathy [Unknown]
  - Visual acuity reduced [Unknown]
  - Weight decreased [Unknown]
  - Pain [Unknown]
